FAERS Safety Report 5576885-2 (Version None)
Quarter: 2007Q4

REPORT INFORMATION
  Report Type: 
  Country: None (occurrence: None)
  Receive Date: 20071228
  Receipt Date: 20071218
  Transmission Date: 20080405
  Serious: Yes (Other)
  Sender: FDA-Public Use
  Company Number: GB-RANBAXY-2007RR-12159

PATIENT

DRUGS (2)
  1. TERBINAFINE HCL [Suspect]
     Dosage: 250 MG, UNK
     Route: 048
     Dates: start: 20070901, end: 20071004
  2. DIANETTE [Concomitant]
     Dosage: UNK
     Route: 048
     Dates: start: 20070201

REACTIONS (5)
  - ANOREXIA [None]
  - FATIGUE [None]
  - PRURITUS [None]
  - SYNCOPE [None]
  - URTICARIA [None]
